FAERS Safety Report 14845627 (Version 3)
Quarter: 2019Q4

REPORT INFORMATION
  Report Type: Spontaneous
  Country: US (occurrence: US)
  Receive Date: 20180504
  Receipt Date: 20191108
  Transmission Date: 20200122
  Serious: Yes (Other)
  Sender: FDA-Public Use
  Company Number: US-PFIZER INC-2018184217

PATIENT
  Age: 59 Year
  Sex: Female
  Weight: 75 kg

DRUGS (11)
  1. XELJANZ [Interacting]
     Active Substance: TOFACITINIB CITRATE
     Indication: OSTEOARTHRITIS
     Dosage: UNK, 1X/DAY
     Dates: start: 201804, end: 201804
  2. PROAIR HFA [Concomitant]
     Active Substance: ALBUTEROL SULFATE
     Dosage: UNK
  3. XELJANZ [Interacting]
     Active Substance: TOFACITINIB CITRATE
     Dosage: UNK
     Dates: start: 20180430
  4. LORATADINE. [Concomitant]
     Active Substance: LORATADINE
     Indication: SINUS CONGESTION
     Dosage: UNK, 1X/DAY
     Route: 048
  5. BENZONATATE. [Concomitant]
     Active Substance: BENZONATATE
     Dosage: 100 MG, 2X/DAY, (MORN./NIGHT)
     Dates: start: 201804
  6. XELJANZ [Suspect]
     Active Substance: TOFACITINIB CITRATE
     Indication: RHEUMATOID ARTHRITIS
     Dosage: 5 MG, 2X/DAY
     Route: 048
     Dates: start: 20180401, end: 201804
  7. XELJANZ [Interacting]
     Active Substance: TOFACITINIB CITRATE
     Dosage: 5 MG, 2X/DAY
     Dates: start: 201804, end: 201804
  8. XELJANZ [Interacting]
     Active Substance: TOFACITINIB CITRATE
     Dosage: 5 MG, 2X/DAY
  9. LEFLUNOMIDE. [Concomitant]
     Active Substance: LEFLUNOMIDE
     Indication: ARTHRITIS
     Dosage: 10 MG, DAILY
  10. AMOXICILLIN CLAVULANIC ACID [Concomitant]
     Active Substance: AMOXICILLIN\CLAVULANIC ACID
     Dosage: UNK, 2X/DAY, [(AMOXICILLIN TRIHYDRATE: 875 MG)/(CLAVULANATE POTASSIUM: 125 MG)], (EVERY 12 HOURS)
  11. AMOXICILLIN. [Interacting]
     Active Substance: AMOXICILLIN
     Indication: OBSTRUCTION
     Dosage: UNK, 2X/DAY (EVERY 12 HOURS)
     Dates: start: 20180420, end: 20180429

REACTIONS (12)
  - Arthropathy [Unknown]
  - Intentional product misuse [Unknown]
  - Cough [Recovered/Resolved]
  - Joint swelling [Not Recovered/Not Resolved]
  - Swelling [Unknown]
  - Insomnia [Unknown]
  - Pain [Not Recovered/Not Resolved]
  - Injury [Unknown]
  - Condition aggravated [Unknown]
  - Nasopharyngitis [Recovered/Resolved]
  - Drug interaction [Unknown]
  - Chest discomfort [Recovered/Resolved]

NARRATIVE: CASE EVENT DATE: 201804
